FAERS Safety Report 7586946-4 (Version None)
Quarter: 2011Q3

REPORT INFORMATION
  Report Type: 
  Country: None (occurrence: None)
  Receive Date: 20110701
  Receipt Date: 20110624
  Transmission Date: 20111222
  Serious: Yes (Death)
  Sender: FDA-Public Use
  Company Number: HU-UCBSA-035299

PATIENT
  Sex: Female
  Weight: 80 kg

DRUGS (4)
  1. CIMZIA [Suspect]
     Indication: RHEUMATOID ARTHRITIS
     Dosage: 200 MG SC/2 WEEKS FROM 03-NOV-2010 TO 02-FEB-2010
     Route: 058
     Dates: start: 20110505
  2. NAPROXEN [Concomitant]
     Indication: RHEUMATOID ARTHRITIS
     Route: 048
     Dates: start: 20100630
  3. LEFLUNOMIDE [Concomitant]
     Indication: RHEUMATOID ARTHRITIS
     Route: 048
     Dates: start: 20100301
  4. METHOTREXATE [Concomitant]
     Indication: RHEUMATOID ARTHRITIS
     Route: 048
     Dates: start: 20100201

REACTIONS (4)
  - APHASIA [None]
  - VOMITING [None]
  - ABDOMINAL PAIN [None]
  - TUBERCULOSIS [None]
